APPROVED DRUG PRODUCT: STERILE WATER IN PLASTIC CONTAINER
Active Ingredient: STERILE WATER FOR IRRIGATION
Strength: 100%
Dosage Form/Route: LIQUID;IRRIGATION
Application: N017866 | Product #001 | TE Code: AT
Applicant: BAXTER HEALTHCARE CORP
Approved: Approved Prior to Jan 1, 1982 | RLD: No | RS: No | Type: RX